FAERS Safety Report 5970212-4 (Version None)
Quarter: 2008Q4

REPORT INFORMATION
  Report Type: 
  Country: None (occurrence: None)
  Receive Date: 20081126
  Receipt Date: 20081016
  Transmission Date: 20090506
  Serious: No
  Sender: FDA-Public Use
  Company Number: US-ABBOTT-08P-163-0482327-00

PATIENT
  Sex: Female
  Weight: 49.94 kg

DRUGS (10)
  1. SIMCOR [Suspect]
     Indication: LOW DENSITY LIPOPROTEIN
     Dosage: 500/20 MG
     Dates: end: 20080620
  2. SIMCOR [Suspect]
     Indication: FAMILIAL RISK FACTOR
     Dosage: 1000/20 MG
     Dates: start: 20080620
  3. CONJUGATED ESTROGENS [Concomitant]
     Indication: DRUG USE FOR UNKNOWN INDICATION
  4. OS-CAL [Concomitant]
     Indication: DRUG USE FOR UNKNOWN INDICATION
     Route: 048
  5. M.V.I. [Concomitant]
     Indication: DRUG USE FOR UNKNOWN INDICATION
  6. ACETYLSALICYLIC ACID SRT [Concomitant]
     Indication: DRUG USE FOR UNKNOWN INDICATION
  7. FOLIC ACID W/VITAMIN B NOS [Concomitant]
     Indication: DRUG USE FOR UNKNOWN INDICATION
  8. PELAGO [Concomitant]
     Indication: DRUG USE FOR UNKNOWN INDICATION
     Dosage: 3-6-9
  9. COENZYME Q10 [Concomitant]
     Indication: DRUG USE FOR UNKNOWN INDICATION
  10. VITAMIN E [Concomitant]
     Indication: DRUG USE FOR UNKNOWN INDICATION

REACTIONS (1)
  - ERYTHEMA [None]
